FAERS Safety Report 7573942-6 (Version None)
Quarter: 2011Q2

REPORT INFORMATION
  Report Type: 
  Country: None (occurrence: None)
  Receive Date: 20110627
  Receipt Date: 20110610
  Transmission Date: 20111010
  Serious: No
  Sender: FDA-Public Use
  Company Number: US-B.I. PHARMACEUTICALS,INC./RIDGEFIELD-2011-BP-15127BP

PATIENT
  Sex: Female

DRUGS (8)
  1. SYNTHROID [Concomitant]
     Indication: THYROID DISORDER
     Dosage: 50 MCG
     Route: 048
     Dates: start: 19910101
  2. SPIRIVA [Suspect]
     Indication: LUNG DISORDER
     Dosage: 18 MCG
     Route: 055
     Dates: start: 20110401
  3. MAXAIR [Concomitant]
     Indication: LUNG DISORDER
     Dosage: 2 PUF
     Route: 055
     Dates: start: 20110401
  4. ROBITUSSIN AC SYRUP [Concomitant]
     Indication: COUGH
     Route: 048
     Dates: start: 20110524
  5. SPIRIVA [Suspect]
     Indication: LUNG NEOPLASM
  6. SPIRIVA [Suspect]
     Indication: ASTHMA
  7. NORVASC [Concomitant]
     Indication: HYPERTENSION
     Dosage: 5 MCG
     Route: 048
     Dates: start: 19960101
  8. DIOVAN HCT [Concomitant]
     Indication: HYPERTENSION
     Route: 048
     Dates: start: 19910101

REACTIONS (3)
  - COUGH [None]
  - SPUTUM DISCOLOURED [None]
  - WHEEZING [None]
